FAERS Safety Report 26009320 (Version 1)
Quarter: 2025Q4

REPORT INFORMATION
  Report Type: Spontaneous
  Country: RS (occurrence: RS)
  Receive Date: 20251107
  Receipt Date: 20251107
  Transmission Date: 20260118
  Serious: Yes (Other)
  Sender: AMGEN
  Company Number: RS-AMGEN-SRBSP2025217504

PATIENT
  Age: 77 Year
  Sex: Male

DRUGS (7)
  1. VECTIBIX [Suspect]
     Active Substance: PANITUMUMAB
     Indication: Intestinal adenocarcinoma
     Dosage: 6 MILLIGRAM/KILOGRAM, Q2WK
     Route: 065
     Dates: start: 202405, end: 202411
  2. FLUOROURACIL [Suspect]
     Active Substance: FLUOROURACIL
     Indication: Intestinal adenocarcinoma
     Dosage: UNK, INITIAL DRUG DOSE REDUCTION BY 30%
     Route: 065
     Dates: start: 202405, end: 202411
  3. FLUOROURACIL [Suspect]
     Active Substance: FLUOROURACIL
     Dosage: UNK, DOSE ADJUSTMENT BY 30%
     Route: 065
     Dates: start: 202506, end: 202509
  4. IRINOTECAN [Suspect]
     Active Substance: IRINOTECAN
     Indication: Intestinal adenocarcinoma
     Dosage: UNK, INITIAL DRUG DOSE REDUCTION BY 30%
     Route: 065
     Dates: start: 202405, end: 202411
  5. LEUCOVORIN [Suspect]
     Active Substance: LEUCOVORIN\LEUCOVORIN CALCIUM
     Indication: Intestinal adenocarcinoma
     Dosage: UNK, INITIAL DRUG DOSE REDUCTION BY 30%
     Route: 065
     Dates: start: 202405, end: 202411
  6. OXALIPLATIN [Suspect]
     Active Substance: OXALIPLATIN
     Indication: Intestinal adenocarcinoma
     Dosage: UNK, DOSE ADJUSTMENT BY 30%
     Route: 065
     Dates: start: 202506, end: 202509
  7. LEUCOVORIN [Suspect]
     Active Substance: LEUCOVORIN\LEUCOVORIN CALCIUM
     Indication: Intestinal adenocarcinoma
     Dosage: UNK,UNK, DOSE ADJUSTMENT BY 30%
     Route: 065
     Dates: start: 202506, end: 202509

REACTIONS (6)
  - Intestinal adenocarcinoma [Unknown]
  - Rash [Unknown]
  - Fatigue [Unknown]
  - Therapy partial responder [Unknown]
  - Decreased appetite [Unknown]
  - Nausea [Unknown]

NARRATIVE: CASE EVENT DATE: 20240101
